FAERS Safety Report 4997473-2 (Version None)
Quarter: 2006Q2

REPORT INFORMATION
  Report Type: 
  Country: None (occurrence: None)
  Receive Date: 20060509
  Receipt Date: 20041206
  Transmission Date: 20061013
  Serious: Yes (Hospitalization, Disabling)
  Sender: FDA-Public Use
  Company Number: US-MERCK-0412USA00780

PATIENT
  Age: 46 Year
  Sex: Male
  Weight: 93 kg

DRUGS (5)
  1. VIOXX [Suspect]
     Indication: ARTHRALGIA
     Route: 048
     Dates: start: 20010924, end: 20020528
  2. ULTRAM [Concomitant]
     Indication: PAIN MANAGEMENT
     Route: 065
     Dates: start: 20001014
  3. ULTRAM [Concomitant]
     Route: 065
     Dates: start: 20020506
  4. HYDROCODONE BITARTRATE + ACETAMINOPHEN [Concomitant]
     Indication: PAIN MANAGEMENT
     Route: 065
     Dates: start: 20010405
  5. HYDROCODONE BITARTRATE + ACETAMINOPHEN [Concomitant]
     Route: 065
     Dates: start: 20020913

REACTIONS (12)
  - AORTIC DISSECTION [None]
  - ATRIAL FIBRILLATION [None]
  - ATRIAL TACHYCARDIA [None]
  - BURSITIS [None]
  - DEPRESSION [None]
  - EMBOLISM [None]
  - HYPERLIPIDAEMIA [None]
  - ISCHAEMIC STROKE [None]
  - PROTEIN S DEFICIENCY [None]
  - PSYCHOMOTOR HYPERACTIVITY [None]
  - RENAL DISORDER [None]
  - TENDONITIS [None]
